FAERS Safety Report 4944542-9 (Version None)
Quarter: 2006Q1

REPORT INFORMATION
  Report Type: 
  Country: None (occurrence: None)
  Receive Date: 20060315
  Receipt Date: 20060308
  Transmission Date: 20060701
  Serious: Yes (Other)
  Sender: FDA-Public Use
  Company Number: PHEH2006US03132

PATIENT
  Sex: Female

DRUGS (1)
  1. TRILEPTAL [Suspect]
     Indication: BIPOLAR DISORDER

REACTIONS (8)
  - AMNESIA [None]
  - COGWHEEL RIGIDITY [None]
  - COORDINATION ABNORMAL [None]
  - DYSKINESIA [None]
  - LOCKED-IN SYNDROME [None]
  - MUSCULAR WEAKNESS [None]
  - NEUROPATHY [None]
  - PERONEAL NERVE PALSY [None]
